FAERS Safety Report 9016478 (Version 1)
Quarter: 2013Q1

REPORT INFORMATION
  Report Type: Spontaneous
  Country: US (occurrence: US)
  Receive Date: 20130116
  Receipt Date: 20130116
  Transmission Date: 20140127
  Serious: Yes (Other)
  Sender: FDA-Public Use
  Company Number: US-TEVA-380798USA

PATIENT
  Sex: Female

DRUGS (2)
  1. CLARAVIS [Suspect]
     Route: 048
     Dates: start: 20130110
  2. CLARAVIS [Suspect]
     Route: 048
     Dates: start: 20120917, end: 20121220

REACTIONS (1)
  - Staphylococcal infection [Unknown]
